FAERS Safety Report 18504993 (Version 1)
Quarter: 2020Q4

REPORT INFORMATION
  Report Type: Spontaneous
  Country: FR (occurrence: FR)
  Receive Date: 20201115
  Receipt Date: 20201115
  Transmission Date: 20210114
  Serious: Yes (Other)
  Sender: FDA-Public Use
  Company Number: FR-ROCHE-2713569

PATIENT
  Age: 58 Year
  Sex: Female
  Weight: 72 kg

DRUGS (3)
  1. ALIMTA [Suspect]
     Active Substance: PEMETREXED DISODIUM
     Indication: LUNG NEOPLASM MALIGNANT
     Dosage: BY CURE?DATE OF MOST RECENT DOSE OF PEMETREXED DISODIUM: 05/AUG/2020
     Route: 042
     Dates: start: 20200313
  2. TECENTRIQ [Suspect]
     Active Substance: ATEZOLIZUMAB
     Indication: LUNG NEOPLASM MALIGNANT
     Dosage: BY CURE?DATE OF MOST RECENT DOSE OF ATEZOLIZUMAB: 05/AUG/2020
     Route: 042
     Dates: start: 20200313
  3. CARBOPLATINE [Suspect]
     Active Substance: CARBOPLATIN
     Indication: LUNG NEOPLASM MALIGNANT
     Dosage: BY CURE?DATE OF MOST RECENT DOSE OF CARBOPLATIN: 27/MAY/2020
     Route: 042
     Dates: start: 20200313

REACTIONS (1)
  - Acute respiratory failure [Not Recovered/Not Resolved]

NARRATIVE: CASE EVENT DATE: 20200701
